FAERS Safety Report 5427245-6 (Version None)
Quarter: 2007Q3

REPORT INFORMATION
  Report Type: 
  Country: None (occurrence: None)
  Receive Date: 20070828
  Receipt Date: 20070822
  Transmission Date: 20080115
  Serious: Yes (Hospitalization)
  Sender: FDA-Public Use
  Company Number: JP-BRISTOL-MYERS SQUIBB COMPANY-13888029

PATIENT
  Age: 65 Year
  Sex: Male

DRUGS (2)
  1. PARAPLATIN [Suspect]
     Indication: LUNG ADENOCARCINOMA
     Dosage: CYCLE 1 OF CARBOPLATIN + PACLITAXEL ADMINISTERED ON 20-JUL-2007.
     Route: 041
     Dates: start: 20070809
  2. TAXOL [Suspect]
     Indication: LUNG ADENOCARCINOMA
     Dosage: CYCLE 1 OF CARBOPLATIN + PACLITAXEL ADMINISTERED ON 20-JUL-2007.
     Route: 041
     Dates: start: 20070809

REACTIONS (2)
  - FAECES DISCOLOURED [None]
  - JAUNDICE [None]
